FAERS Safety Report 7533578-X (Version None)
Quarter: 2011Q2

REPORT INFORMATION
  Report Type: 
  Country: None (occurrence: None)
  Receive Date: 20110608
  Receipt Date: 20110526
  Transmission Date: 20111010
  Serious: Yes (Hospitalization)
  Sender: FDA-Public Use
  Company Number: US-UCBSA-033006

PATIENT
  Sex: Female

DRUGS (3)
  1. HUMIRA [Concomitant]
  2. CIMZIA [Suspect]
     Indication: CROHN'S DISEASE
     Route: 058
     Dates: start: 20090521
  3. REMICADE [Concomitant]

REACTIONS (8)
  - DEHYDRATION [None]
  - RENAL FAILURE ACUTE [None]
  - FOOD POISONING [None]
  - LOSS OF CONSCIOUSNESS [None]
  - BLOOD POTASSIUM DECREASED [None]
  - BLOOD CREATININE INCREASED [None]
  - BLOOD PRESSURE INCREASED [None]
  - MALAISE [None]
